FAERS Safety Report 24724825 (Version 1)
Quarter: 2024Q4

REPORT INFORMATION
  Report Type: Spontaneous
  Country: RS (occurrence: RS)
  Receive Date: 20241212
  Receipt Date: 20241212
  Transmission Date: 20250114
  Serious: Yes (Other)
  Sender: BRISTOL-MYERS SQUIBB COMPANY
  Company Number: RS-BRISTOL-MYERS SQUIBB COMPANY-2024-188204

PATIENT
  Age: 40 Year
  Sex: Male

DRUGS (3)
  1. OPDIVO [Suspect]
     Active Substance: NIVOLUMAB
     Indication: Oesophageal adenocarcinoma
     Dosage: 6 CYCLES
     Route: 042
     Dates: start: 20240202
  2. CISPLATIN [Suspect]
     Active Substance: CISPLATIN
     Indication: Oesophageal adenocarcinoma
  3. FLUOROURACIL [Suspect]
     Active Substance: FLUOROURACIL
     Indication: Oesophageal adenocarcinoma

REACTIONS (2)
  - Necrotic lymphadenopathy [Unknown]
  - Malignant neoplasm progression [Unknown]
